FAERS Safety Report 8439449-9 (Version None)
Quarter: 2012Q2

REPORT INFORMATION
  Report Type: 
  Country: None (occurrence: None)
  Receive Date: 20120615
  Receipt Date: 20120605
  Transmission Date: 20120825
  Serious: Yes (Other)
  Sender: FDA-Public Use
  Company Number: US-JNJFOC-20120602285

PATIENT
  Age: 56 Year
  Sex: Male

DRUGS (1)
  1. INFLIXIMAB, RECOMBINANT [Suspect]
     Indication: CROHN'S DISEASE
     Route: 042

REACTIONS (11)
  - QUALITY OF LIFE DECREASED [None]
  - EYE PAIN [None]
  - CROHN'S DISEASE [None]
  - LETHARGY [None]
  - JOINT RANGE OF MOTION DECREASED [None]
  - DRUG INEFFECTIVE [None]
  - ARTHRITIS [None]
  - SINUSITIS [None]
  - DISEASE RECURRENCE [None]
  - TREATMENT FAILURE [None]
  - SYNOVITIS [None]
